FAERS Safety Report 11274661 (Version 1)
Quarter: 2015Q3

REPORT INFORMATION
  Report Type: Spontaneous
  Country: DK (occurrence: DE)
  Receive Date: 20150715
  Receipt Date: 20150715
  Transmission Date: 20151125
  Serious: Yes (Other)
  Sender: FDA-Public Use
  Company Number: DE-FRI-1000078061

PATIENT
  Age: 33 Year
  Sex: Female
  Weight: 87 kg

DRUGS (4)
  1. CITALOPRAM [Suspect]
     Active Substance: CITALOPRAM HYDROBROMIDE
     Indication: DEPRESSION
     Dosage: PROBABLY 10 MILLIGRAM
     Route: 048
     Dates: start: 20141022, end: 20150203
  2. FEMIBION SCHWANGERSCHAFT 1 [Concomitant]
     Indication: PROPHYLAXIS OF NEURAL TUBE DEFECT
     Dosage: 0.8 MILLIGRAM
     Route: 048
     Dates: start: 20140421, end: 20140919
  3. MISODOL [Concomitant]
     Indication: LABOUR INDUCTION
     Route: 067
     Dates: start: 20150203, end: 20150203
  4. ST. JOHN^S WORT [Concomitant]
     Active Substance: ST. JOHN^S WORT
     Indication: ANXIETY DISORDER
     Dosage: HOEMEOPATHIC PREPARATION (C30)
     Route: 048
     Dates: start: 20140911, end: 20141022

REACTIONS (2)
  - Caesarean section [Unknown]
  - Pregnancy [Unknown]
